FAERS Safety Report 13043618 (Version 1)
Quarter: 2016Q4

REPORT INFORMATION
  Report Type: Spontaneous
  Country: US (occurrence: US)
  Receive Date: 20161219
  Receipt Date: 20161219
  Transmission Date: 20170207
  Serious: No
  Sender: FDA-Public Use
  Company Number: None

PATIENT
  Age: 60 Year
  Sex: Female

DRUGS (7)
  1. SIMVASTATIN. [Concomitant]
     Active Substance: SIMVASTATIN
  2. LYSODREN [Suspect]
     Active Substance: MITOTANE
     Indication: ADRENAL GLAND CANCER
     Route: 048
     Dates: start: 20130313
  3. HYDROCORTIZONE [Concomitant]
     Active Substance: HYDROCORTISONE
  4. AMLOBIPINE [Concomitant]
  5. VICODIN [Concomitant]
     Active Substance: ACETAMINOPHEN\HYDROCODONE BITARTRATE
  6. IMPETIMIDE [Concomitant]
  7. GABATIN [Concomitant]

REACTIONS (3)
  - Therapy cessation [None]
  - Malaise [None]
  - Lung neoplasm malignant [None]

NARRATIVE: CASE EVENT DATE: 20161205
